FAERS Safety Report 4975722-4 (Version None)
Quarter: 2006Q2

REPORT INFORMATION
  Report Type: 
  Country: None (occurrence: None)
  Receive Date: 20060411
  Receipt Date: 20060403
  Transmission Date: 20061013
  Serious: Yes (Hospitalization)
  Sender: FDA-Public Use
  Company Number: 060403-0000307

PATIENT
  Age: 56 Year
  Sex: Male

DRUGS (5)
  1. CLORAZEPATE DIPOTASSIUM [Suspect]
     Indication: DEPRESSION
     Dosage: PO
     Route: 048
     Dates: end: 20060104
  2. NORTRIPTYLINE HCL [Suspect]
     Indication: DEPRESSION
     Dates: end: 20060104
  3. GLIMEPIRIDE [Suspect]
     Dosage: PO
     Route: 048
     Dates: start: 20030101, end: 20060104
  4. METFORMIN [Suspect]
     Dosage: PO
     Route: 048
     Dates: start: 20030101, end: 20060104
  5. XANTINOL NICOTINATE (XANTINOL NICOTINATE) [Suspect]
     Dosage: PO
     Route: 048
     Dates: start: 20030101, end: 20060104

REACTIONS (6)
  - DRUG ABUSER [None]
  - HAEMODIALYSIS [None]
  - HYPOTENSION [None]
  - RENAL FAILURE ACUTE [None]
  - SOMNOLENCE [None]
  - SOPOR [None]
